FAERS Safety Report 23926847 (Version 2)
Quarter: 2025Q3

REPORT INFORMATION
  Report Type: Spontaneous
  Country: US (occurrence: US)
  Receive Date: 20240531
  Receipt Date: 20250703
  Transmission Date: 20251020
  Serious: No
  Sender: RADIUS PHARM
  Company Number: US-RADIUS HEALTH INC.-2024US000573

PATIENT
  Age: 66 Year
  Sex: Female

DRUGS (1)
  1. TYMLOS [Suspect]
     Active Substance: ABALOPARATIDE
     Indication: Osteoporosis
     Dates: start: 202312

REACTIONS (9)
  - Injection site bruising [Recovering/Resolving]
  - Injection site mass [Unknown]
  - Injection site erythema [Recovering/Resolving]
  - Muscle spasms [Unknown]
  - Injection site induration [Unknown]
  - Injection site swelling [Unknown]
  - Injection site pruritus [Unknown]
  - Urticaria [Unknown]
  - Head discomfort [Unknown]

NARRATIVE: CASE EVENT DATE: 20231201
